FAERS Safety Report 14940608 (Version 1)
Quarter: 2018Q2

REPORT INFORMATION
  Report Type: Spontaneous
  Country: CA (occurrence: CA)
  Receive Date: 20180525
  Receipt Date: 20180525
  Transmission Date: 20180711
  Serious: Yes (Other)
  Sender: FDA-Public Use
  Company Number: CA-TEVA-2018-CA-894260

PATIENT
  Age: 56 Year
  Sex: Male

DRUGS (2)
  1. COLCHICINE. [Suspect]
     Active Substance: COLCHICINE
     Indication: COLITIS ULCERATIVE
     Route: 065
     Dates: start: 2018, end: 2018
  2. INDOMETACIN [Suspect]
     Active Substance: INDOMETHACIN
     Indication: COLITIS ULCERATIVE
     Route: 065
     Dates: start: 2018, end: 2018

REACTIONS (2)
  - Diarrhoea haemorrhagic [Unknown]
  - Colitis ulcerative [Unknown]

NARRATIVE: CASE EVENT DATE: 2018
